FAERS Safety Report 14921131 (Version 9)
Quarter: 2018Q3

REPORT INFORMATION
  Report Type: Spontaneous
  Country: AU (occurrence: AU)
  Receive Date: 20180521
  Receipt Date: 20180924
  Transmission Date: 20181010
  Serious: Yes (Hospitalization, Other)
  Sender: FDA-Public Use
  Company Number: AU-ALEXION PHARMACEUTICALS INC.-A201802623

PATIENT
  Age: 26 Year
  Sex: Female

DRUGS (3)
  1. SOLIRIS [Suspect]
     Active Substance: ECULIZUMAB
     Indication: ATYPICAL HAEMOLYTIC URAEMIC SYNDROME
     Dosage: 900 MG, QW
     Route: 042
  2. SOLIRIS [Suspect]
     Active Substance: ECULIZUMAB
     Dosage: 1200 MG, Q2W
     Route: 042
  3. SOLIRIS [Suspect]
     Active Substance: ECULIZUMAB
     Dosage: 900 MG, QW
     Route: 042
     Dates: start: 201805, end: 201807

REACTIONS (22)
  - Drug ineffective [Not Recovered/Not Resolved]
  - Exposure during pregnancy [Recovered/Resolved]
  - Visual impairment [Unknown]
  - Haptoglobin increased [Unknown]
  - Haemolysis [Recovered/Resolved]
  - Headache [Unknown]
  - Urine albumin/creatinine ratio abnormal [Unknown]
  - Hyperreflexia [Unknown]
  - Blood lactate dehydrogenase increased [Not Recovered/Not Resolved]
  - Proteinuria [Not Recovered/Not Resolved]
  - Platelet count increased [Not Recovered/Not Resolved]
  - Blood creatinine increased [Not Recovered/Not Resolved]
  - Anaemia [Not Recovered/Not Resolved]
  - Incorrect dose administered [Not Recovered/Not Resolved]
  - Red blood cell schistocytes present [Not Recovered/Not Resolved]
  - Hypertension [Unknown]
  - Oedema [Unknown]
  - Pre-eclampsia [Unknown]
  - Fluid retention [Unknown]
  - Haptoglobin decreased [Recovering/Resolving]
  - Nephrotic syndrome [Not Recovered/Not Resolved]
  - Endocarditis [Unknown]
